FAERS Safety Report 4996707-8 (Version None)
Quarter: 2006Q2

REPORT INFORMATION
  Report Type: 
  Country: None (occurrence: None)
  Receive Date: 20060509
  Receipt Date: 20050125
  Transmission Date: 20061013
  Serious: Yes (Death, Hospitalization)
  Sender: FDA-Public Use
  Company Number: US-GLAXOSMITHKLINE-A0548464A

PATIENT
  Age: 66 Year
  Sex: Male
  Weight: 80.3 kg

DRUGS (4)
  1. BEXXAR [Suspect]
     Indication: NON-HODGKIN'S LYMPHOMA
     Route: 042
     Dates: start: 20041112, end: 20041112
  2. IODINE I 131 TOSITUMOMAB [Suspect]
     Indication: NON-HODGKIN'S LYMPHOMA
     Route: 042
     Dates: start: 20041112, end: 20041112
  3. BEXXAR [Suspect]
     Route: 042
     Dates: start: 20041119, end: 20041119
  4. IODINE I 131 TOSITUMOMAB [Suspect]
     Route: 042
     Dates: start: 20041119, end: 20041119

REACTIONS (15)
  - CARDIO-RESPIRATORY ARREST [None]
  - DIALYSIS [None]
  - DISEASE PROGRESSION [None]
  - ELECTROLYTE IMBALANCE [None]
  - FATIGUE [None]
  - HEPATIC FAILURE [None]
  - HYPOGLYCAEMIA [None]
  - HYPOTENSION [None]
  - LYMPHADENITIS [None]
  - METABOLIC ACIDOSIS [None]
  - NECK MASS [None]
  - NECROSIS [None]
  - RENAL FAILURE [None]
  - RESPIRATORY FAILURE [None]
  - SEPSIS [None]
